FAERS Safety Report 17391079 (Version 2)
Quarter: 2020Q1

REPORT INFORMATION
  Report Type: Spontaneous
  Country: JP (occurrence: JP)
  Receive Date: 20200207
  Receipt Date: 20200331
  Transmission Date: 20200409
  Serious: Yes (Disabling)
  Sender: FDA-Public Use
  Company Number: JP-TEVA-2020-JP-1182628

PATIENT
  Age: 77 Year
  Sex: Female
  Weight: 51.6 kg

DRUGS (6)
  1. AZILECT [Suspect]
     Active Substance: RASAGILINE MESYLATE
     Indication: PARKINSON^S DISEASE
     Dosage: 1 MILLIGRAM DAILY;
     Route: 048
     Dates: start: 20190629, end: 20200201
  2. MADOPAR [Concomitant]
     Active Substance: BENSERAZIDE HYDROCHLORIDE\LEVODOPA
     Dates: start: 20180120
  3. MIRAPLEX LA [Concomitant]
     Route: 065
     Dates: start: 20180630
  4. NEUPRO [Concomitant]
     Active Substance: ROTIGOTINE
     Dates: start: 20190921, end: 20191018
  5. ARTANE [Concomitant]
     Active Substance: TRIHEXYPHENIDYL HYDROCHLORIDE
     Route: 065
     Dates: start: 20190406, end: 20190817
  6. BETANIS [Concomitant]
     Active Substance: MIRABEGRON
     Route: 065
     Dates: start: 20190406

REACTIONS (4)
  - Progressive supranuclear palsy [Not Recovered/Not Resolved]
  - Parkinsonian gait [Not Recovered/Not Resolved]
  - Thirst [Unknown]
  - Somnolence [Recovered/Resolved]

NARRATIVE: CASE EVENT DATE: 201908
